FAERS Safety Report 23437015 (Version 2)
Quarter: 2024Q1

REPORT INFORMATION
  Report Type: Spontaneous
  Country: US (occurrence: US)
  Receive Date: 20240124
  Receipt Date: 20240124
  Transmission Date: 20240410
  Serious: No
  Sender: FDA-Public Use
  Company Number: US-OPELLA-2024OHG002096

PATIENT
  Sex: Female

DRUGS (2)
  1. DULCOLAX (BISACODYL) [Suspect]
     Active Substance: BISACODYL
     Indication: Constipation
     Dates: start: 20240118
  2. DULCOLAX (BISACODYL) [Suspect]
     Active Substance: BISACODYL

REACTIONS (3)
  - Therapeutic product effect variable [Unknown]
  - Product use issue [Unknown]
  - No adverse event [Unknown]
